FAERS Safety Report 9059911 (Version 1)
Quarter: 2013Q1

REPORT INFORMATION
  Report Type: Spontaneous
  Country: US (occurrence: US)
  Receive Date: 20130212
  Receipt Date: 20130212
  Transmission Date: 20140127
  Serious: Yes (Other)
  Sender: FDA-Public Use
  Company Number: US-JNJFOC-20130205492

PATIENT
  Sex: Female

DRUGS (4)
  1. DOXORUBICIN [Suspect]
     Indication: EWING^S SARCOMA
     Route: 042
  2. DACTINOMYCIN [Suspect]
     Indication: EWING^S SARCOMA
     Dosage: FOR 7 MONTHS
     Route: 065
  3. CYCLOPHOSPHAMIDE [Suspect]
     Indication: EWING^S SARCOMA
     Route: 065
  4. VINCRISTINE [Suspect]
     Indication: EWING^S SARCOMA
     Route: 065

REACTIONS (2)
  - Mucoepidermoid carcinoma [Recovered/Resolved]
  - Off label use [Unknown]
